FAERS Safety Report 10886695 (Version 2)
Quarter: 2015Q2

REPORT INFORMATION
  Report Type: Report from Study
  Country: US (occurrence: US)
  Receive Date: 20150304
  Receipt Date: 20150601
  Transmission Date: 20150821
  Serious: Yes (Hospitalization)
  Sender: FDA-Public Use
  Company Number: US-BIOMARINAP-US-2015-105683

PATIENT
  Age: 2 Year
  Sex: Female

DRUGS (2)
  1. ALDURAZYME [Suspect]
     Active Substance: LARONIDASE
     Indication: MUCOPOLYSACCHARIDOSIS I
     Dosage: UNK UNK, QW
     Route: 041
     Dates: start: 20140416
  2. ALDURAZYME [Suspect]
     Active Substance: LARONIDASE
     Dosage: 26 MG, QOW
     Route: 041
     Dates: start: 20150306

REACTIONS (3)
  - Platelet count decreased [Unknown]
  - Sepsis [Unknown]
  - Thrombolysis [Unknown]

NARRATIVE: CASE EVENT DATE: 20150218
